FAERS Safety Report 12625550 (Version 2)
Quarter: 2016Q3

REPORT INFORMATION
  Report Type: Spontaneous
  Country: FR (occurrence: FR)
  Receive Date: 20160805
  Receipt Date: 20160915
  Transmission Date: 20161109
  Serious: Yes (Hospitalization)
  Sender: FDA-Public Use
  Company Number: FR-009507513-1608FRA003197

PATIENT
  Sex: Male

DRUGS (7)
  1. CALDINE [Suspect]
     Active Substance: LACIDIPINE
     Dosage: 1 DF, DAILY
     Route: 048
     Dates: end: 20150413
  2. JANUVIA [Suspect]
     Active Substance: SITAGLIPTIN PHOSPHATE
     Dosage: 1 DF, DAILY
     Route: 048
     Dates: end: 20150413
  3. TRANQUITAL [Suspect]
     Active Substance: HERBALS
     Dosage: 2 DF, DAILY
     Route: 048
     Dates: end: 20150413
  4. XARELTO [Suspect]
     Active Substance: RIVAROXABAN
     Dosage: 1 DF, DAILY
     Route: 048
     Dates: end: 20150413
  5. ATACAND [Suspect]
     Active Substance: CANDESARTAN CILEXETIL
     Dosage: 1 DF, DAILY
     Route: 048
     Dates: end: 20150413
  6. PARIET [Suspect]
     Active Substance: RABEPRAZOLE SODIUM
     Dosage: 1 DF, DAILY
     Route: 048
     Dates: end: 20150413
  7. DOLENIO [Suspect]
     Active Substance: GLUCOSAMINE
     Dosage: 1 DF, DAILY
     Route: 048
     Dates: end: 20150413

REACTIONS (2)
  - Jaundice [Unknown]
  - Hepatic enzyme increased [Unknown]
